FAERS Safety Report 7237393-6 (Version None)
Quarter: 2011Q1

REPORT INFORMATION
  Report Type: 
  Country: None (occurrence: None)
  Receive Date: 20110112
  Receipt Date: 20101229
  Transmission Date: 20110831
  Serious: Yes (Other)
  Sender: FDA-Public Use
  Company Number: JPI-P-013324

PATIENT
  Age: 40 Year
  Sex: Female
  Weight: 54.4316 kg

DRUGS (4)
  1. XYREM [Suspect]
     Indication: INSOMNIA
     Dosage: 7 GM (3.5 GM,2 IN 1 D),ORAL ; 7.5 GM (3.75 GM,2 IN 1 D),ORAL
     Route: 048
     Dates: start: 20100915, end: 20101005
  2. XYREM [Suspect]
     Indication: FIBROMYALGIA
     Dosage: 7 GM (3.5 GM,2 IN 1 D),ORAL ; 7.5 GM (3.75 GM,2 IN 1 D),ORAL
     Route: 048
     Dates: start: 20100915, end: 20101005
  3. XYREM [Suspect]
     Indication: INSOMNIA
     Dosage: 7 GM (3.5 GM,2 IN 1 D),ORAL ; 7.5 GM (3.75 GM,2 IN 1 D),ORAL
     Route: 048
     Dates: start: 20101006
  4. XYREM [Suspect]
     Indication: FIBROMYALGIA
     Dosage: 7 GM (3.5 GM,2 IN 1 D),ORAL ; 7.5 GM (3.75 GM,2 IN 1 D),ORAL
     Route: 048
     Dates: start: 20101006

REACTIONS (6)
  - CONFUSIONAL STATE [None]
  - ROAD TRAFFIC ACCIDENT [None]
  - TONGUE BLISTERING [None]
  - CONDITION AGGRAVATED [None]
  - HEAD INJURY [None]
  - AMNESIA [None]
